FAERS Safety Report 9206914 (Version 1)
Quarter: 2013Q1

REPORT INFORMATION
  Report Type: Spontaneous
  Country: US (occurrence: None)
  Receive Date: 20120713
  Receipt Date: 20120713
  Transmission Date: 20140127
  Serious: No
  Sender: FDA-Public Use
  Company Number: PHEH2012US006196

PATIENT
  Age: 35 Year
  Sex: Female
  Weight: 180 kg

DRUGS (6)
  1. ILARIS [Suspect]
     Indication: MUCKLE-WELLS SYNDROME
     Dosage: Q8W
     Route: 058
     Dates: start: 20120214
  2. ALBUTEROL (SALBUTAMOL) [Concomitant]
  3. EPIPEN (EPINEPHRINE) [Concomitant]
  4. IBUPROFEN (IBUPROFEN) [Concomitant]
  5. EXCEDRIN (CAFFEINE, PARACETAMOL) [Concomitant]
  6. LORTAB (HYDROCODONE BITARTRATE, PARACETAMOL) [Concomitant]

REACTIONS (8)
  - Immunosuppression [None]
  - Myalgia [None]
  - Upper respiratory tract infection [None]
  - Asthenia [None]
  - Fatigue [None]
  - Nasopharyngitis [None]
  - Throat irritation [None]
  - Rhinorrhoea [None]
